FAERS Safety Report 6834628-6 (Version None)
Quarter: 2010Q3

REPORT INFORMATION
  Report Type: 
  Country: None (occurrence: None)
  Receive Date: 20100712
  Receipt Date: 20070529
  Transmission Date: 20110219
  Serious: No
  Sender: FDA-Public Use
  Company Number: US-PFIZER INC-2007026757

PATIENT
  Age: 37 Year
  Sex: Female
  Weight: 113.4 kg

DRUGS (8)
  1. CHANTIX [Suspect]
     Indication: SMOKING CESSATION THERAPY
     Dates: start: 20070323
  2. TOPAMAX [Concomitant]
     Indication: MIGRAINE
  3. CADUET [Concomitant]
  4. ACETYLSALICYLIC ACID [Concomitant]
  5. PREVACID [Concomitant]
  6. MONTELUKAST SODIUM [Concomitant]
  7. EFFEXOR XR [Concomitant]
  8. NASONEX [Concomitant]

REACTIONS (1)
  - NAUSEA [None]
